FAERS Safety Report 19965828 (Version 1)
Quarter: 2021Q4

REPORT INFORMATION
  Report Type: Spontaneous
  Country: US (occurrence: US)
  Receive Date: 20211018
  Receipt Date: 20211018
  Transmission Date: 20220303
  Serious: No
  Sender: FDA-Public Use
  Company Number: US-SUNOVION-2021SUN003902

PATIENT
  Age: 60 Year
  Sex: Male

DRUGS (1)
  1. KYNMOBI [Suspect]
     Active Substance: APOMORPHINE HYDROCHLORIDE
     Dosage: 10 MG, QD
     Route: 060

REACTIONS (4)
  - Dyspepsia [Unknown]
  - Somnolence [Unknown]
  - Hyperhidrosis [Unknown]
  - Dizziness [Unknown]
